FAERS Safety Report 11782093 (Version 5)
Quarter: 2015Q4

REPORT INFORMATION
  Report Type: Report from Study
  Country: US (occurrence: US)
  Receive Date: 20151126
  Receipt Date: 20151224
  Transmission Date: 20160305
  Serious: Yes (Death, Hospitalization, Other)
  Sender: FDA-Public Use
  Company Number: US-AMGEN-USASL2015125294

PATIENT
  Age: 64 Year
  Sex: Male

DRUGS (1)
  1. KYPROLIS [Suspect]
     Active Substance: CARFILZOMIB
     Indication: PRODUCT USED FOR UNKNOWN INDICATION
     Dosage: UNK, UNK
     Route: 065
     Dates: start: 201511

REACTIONS (19)
  - Death [Fatal]
  - Conjunctivitis [Unknown]
  - Thoracostomy [Unknown]
  - Renal failure [Unknown]
  - Cachexia [Unknown]
  - Pneumonia [Unknown]
  - Epistaxis [Unknown]
  - Tremor [Unknown]
  - Platelet count decreased [Unknown]
  - Infection [Unknown]
  - Staphylococcal infection [Unknown]
  - Thrombosis [Unknown]
  - Nausea [Unknown]
  - Fatigue [Unknown]
  - Asthenia [Unknown]
  - Abasia [Unknown]
  - Confusional state [Unknown]
  - Anaemia [Unknown]
  - Decreased appetite [Unknown]

NARRATIVE: CASE EVENT DATE: 2015
